FAERS Safety Report 25224659 (Version 2)
Quarter: 2025Q2

REPORT INFORMATION
  Report Type: Spontaneous
  Country: US (occurrence: US)
  Receive Date: 20250422
  Receipt Date: 20250522
  Transmission Date: 20250716
  Serious: No
  Sender: IPSEN BIOPHARMACEUTICALS, INC.
  Company Number: US-IPSEN Group, Research and Development-2025-08700

PATIENT
  Sex: Female
  Weight: 77.11 kg

DRUGS (17)
  1. IQIRVO [Suspect]
     Active Substance: ELAFIBRANOR
     Indication: Primary biliary cholangitis
     Route: 048
  2. HERBALS [Concomitant]
     Active Substance: HERBALS
  3. DEMANNOSE [Concomitant]
     Active Substance: DEMANNOSE
  4. OMEGAPURE [Concomitant]
  5. VITAMIN E [Concomitant]
     Active Substance: .ALPHA.-TOCOPHEROL
  6. MACA [Concomitant]
  7. VITAMIN D3 [Concomitant]
     Active Substance: CHOLECALCIFEROL
  8. VITAMIN B COMPLEX [Concomitant]
     Active Substance: CYANOCOBALAMIN\DEXPANTHENOL\NIACINAMIDE\PYRIDOXINE HYDROCHLORIDE\RIBOFLAVIN 5^-PHOSPHATE SODIUM\THIA
  9. POTASSIUM CHLORIDE [Concomitant]
     Active Substance: POTASSIUM CHLORIDE
  10. MONTELUKAST SODIUM [Concomitant]
     Active Substance: MONTELUKAST SODIUM
  11. URSODIOL [Concomitant]
     Active Substance: URSODIOL
  12. PROBIOTIC 10B CELL [Concomitant]
  13. MAGNESIUM [Concomitant]
     Active Substance: MAGNESIUM
  14. LINZESS [Concomitant]
     Active Substance: LINACLOTIDE
  15. PHENTERMINE HYDROCHLORIDE [Concomitant]
     Active Substance: PHENTERMINE HYDROCHLORIDE
  16. OMEPRAZOLE [Concomitant]
     Active Substance: OMEPRAZOLE
  17. SUCRALFATE [Concomitant]
     Active Substance: SUCRALFATE

REACTIONS (2)
  - Fatigue [Not Recovered/Not Resolved]
  - Pruritus [Unknown]
